FAERS Safety Report 5523477-7 (Version None)
Quarter: 2007Q4

REPORT INFORMATION
  Report Type: 
  Country: None (occurrence: None)
  Receive Date: 20071121
  Receipt Date: 20071115
  Transmission Date: 20080405
  Serious: Yes (Life-Threatening, Hospitalization)
  Sender: FDA-Public Use
  Company Number: FR-JNJFOC-20071102524

PATIENT
  Sex: Male
  Weight: 83.99 kg

DRUGS (6)
  1. HALDOL [Suspect]
     Indication: SCHIZOPHRENIA
  2. CLOZAPINE [Suspect]
     Indication: SCHIZOPHRENIA
  3. IMIPRAMINE [Concomitant]
  4. BENZATROPINE [Concomitant]
  5. COLACE [Concomitant]
     Indication: DRUG USE FOR UNKNOWN INDICATION
  6. TRAZODONE HCL [Concomitant]
     Indication: DRUG USE FOR UNKNOWN INDICATION

REACTIONS (4)
  - GASTROINTESTINAL NECROSIS [None]
  - MESENTERIC ARTERY THROMBOSIS [None]
  - SEPSIS [None]
  - SYNCOPE [None]
